FAERS Safety Report 9951154 (Version 1)
Quarter: 2014Q1

REPORT INFORMATION
  Report Type: Report from Study
  Country: US (occurrence: US)
  Receive Date: 20140304
  Receipt Date: 20140304
  Transmission Date: 20141002
  Serious: No
  Sender: FDA-Public Use
  Company Number: US-ABBVIE-13P-163-1068603-00

PATIENT
  Age: 33 Year
  Sex: Female
  Weight: 56.3 kg

DRUGS (2)
  1. HUMIRA [Suspect]
     Indication: BEHCET^S SYNDROME
     Dates: start: 20130322
  2. HUMIRA [Suspect]
     Indication: SYSTEMIC LUPUS ERYTHEMATOSUS

REACTIONS (2)
  - Injection site pain [Recovered/Resolved]
  - Off label use [Not Recovered/Not Resolved]
